FAERS Safety Report 24961508 (Version 1)
Quarter: 2025Q1

REPORT INFORMATION
  Report Type: Spontaneous
  Country: US (occurrence: None)
  Receive Date: 20250212
  Receipt Date: 20250212
  Transmission Date: 20250408
  Serious: Yes (Other)
  Sender: FDA-CTU
  Company Number: None

PATIENT
  Age: 19 Year
  Sex: Female
  Weight: 126 kg

DRUGS (3)
  1. SERTRALINE [Suspect]
     Active Substance: SERTRALINE HYDROCHLORIDE
     Indication: Social anxiety disorder
     Dates: start: 20220405, end: 20241109
  2. GUANFACINE [Concomitant]
     Active Substance: GUANFACINE
  3. LISDEXAMFETAMINE [Concomitant]
     Active Substance: LISDEXAMFETAMINE

REACTIONS (6)
  - Sexual dysfunction [None]
  - Orgasmic sensation decreased [None]
  - Genital hypoaesthesia [None]
  - Emotional poverty [None]
  - Appetite disorder [None]
  - Thirst decreased [None]

NARRATIVE: CASE EVENT DATE: 20241101
